FAERS Safety Report 25339641 (Version 2)
Quarter: 2025Q2

REPORT INFORMATION
  Report Type: Spontaneous
  Country: US (occurrence: US)
  Receive Date: 20250521
  Receipt Date: 20250617
  Transmission Date: 20250716
  Serious: Yes (Hospitalization)
  Sender: ALEXION PHARMACEUTICALS
  Company Number: US-AstraZeneca-CH-00867836AP

PATIENT

DRUGS (1)
  1. BREZTRI [Suspect]
     Active Substance: BUDESONIDE\FORMOTEROL\GLYCOPYRROLATE
     Indication: Chronic obstructive pulmonary disease
     Dosage: 160 MICROGRAM, BID
     Route: 065

REACTIONS (6)
  - Pneumonia [Unknown]
  - Respiration abnormal [Unknown]
  - Product use issue [Unknown]
  - Incorrect dose administered [Unknown]
  - Product use issue [Unknown]
  - Wrong technique in device usage process [Unknown]
